FAERS Safety Report 8162800-4 (Version None)
Quarter: 2012Q1

REPORT INFORMATION
  Report Type: 
  Country: None (occurrence: None)
  Receive Date: 20120221
  Receipt Date: 20120206
  Transmission Date: 20120608
  Serious: No
  Sender: FDA-Public Use
  Company Number: SPI201200027

PATIENT
  Age: 47 Year
  Sex: Female
  Weight: 51.7 kg

DRUGS (7)
  1. CARDIZEM [Concomitant]
  2. AMITIZA [Suspect]
     Indication: CONSTIPATION
     Dosage: 8 MCG, BID, ORAL;24 MCG, BID
     Route: 048
  3. AMITIZA [Suspect]
     Indication: CONSTIPATION
     Dosage: 8 MCG, BID, ORAL;24 MCG, BID
     Route: 048
     Dates: start: 20120101
  4. COZAAR [Concomitant]
  5. NORCO [Concomitant]
  6. XANAX [Concomitant]
  7. FENTANYL [Concomitant]

REACTIONS (5)
  - DRUG INEFFECTIVE [None]
  - FATIGUE [None]
  - CHEST DISCOMFORT [None]
  - DYSPNOEA [None]
  - NASOPHARYNGITIS [None]
